FAERS Safety Report 11707068 (Version 1)
Quarter: 2015Q4

REPORT INFORMATION
  Report Type: Report from Study
  Country: JP (occurrence: JP)
  Receive Date: 20151106
  Receipt Date: 20151106
  Transmission Date: 20160304
  Serious: Yes (Death)
  Sender: FDA-Public Use
  Company Number: JP-009507513-1511JPN004081

PATIENT
  Age: 60 Year
  Sex: Female

DRUGS (16)
  1. BEVACIZUMAB [Suspect]
     Active Substance: BEVACIZUMAB
     Dosage: 10 MG/KG, UNK
     Route: 041
     Dates: start: 20141222, end: 20141222
  2. TEMODAL [Suspect]
     Active Substance: TEMOZOLOMIDE
     Dosage: 200 MG, QD
     Route: 048
     Dates: start: 20141110, end: 20141114
  3. BEVACIZUMAB [Suspect]
     Active Substance: BEVACIZUMAB
     Dosage: 10 MG/KG, UNK
     Route: 041
     Dates: start: 20140901, end: 20140901
  4. BEVACIZUMAB [Suspect]
     Active Substance: BEVACIZUMAB
     Dosage: 10 MG/KG, UNK
     Route: 041
     Dates: start: 20140929, end: 20140929
  5. TEMODAL [Suspect]
     Active Substance: TEMOZOLOMIDE
     Dosage: 200 MG, QD
     Route: 048
     Dates: start: 20140918, end: 20140922
  6. TEMODAL [Suspect]
     Active Substance: TEMOZOLOMIDE
     Dosage: 200 MG, QD
     Route: 048
     Dates: start: 20141016, end: 20141020
  7. BEVACIZUMAB [Suspect]
     Active Substance: BEVACIZUMAB
     Dosage: 10 MG/KG, UNK
     Route: 041
     Dates: start: 20141127, end: 20141127
  8. TEMODAL [Suspect]
     Active Substance: TEMOZOLOMIDE
     Indication: GLIOMATOSIS CEREBRI
     Dosage: 200 MG, QD
     Route: 048
     Dates: start: 20140818, end: 20140822
  9. BEVACIZUMAB [Suspect]
     Active Substance: BEVACIZUMAB
     Indication: GLIOMATOSIS CEREBRI
     Dosage: 10 MG/KG, UNK
     Route: 041
     Dates: start: 20140818, end: 20140818
  10. BEVACIZUMAB [Suspect]
     Active Substance: BEVACIZUMAB
     Dosage: 10 MG/KG, UNK
     Route: 041
     Dates: start: 20141016, end: 20141016
  11. BEVACIZUMAB [Suspect]
     Active Substance: BEVACIZUMAB
     Dosage: 10 MG/KG, UNK
     Route: 041
     Dates: start: 20150105, end: 20150105
  12. TEMODAL [Suspect]
     Active Substance: TEMOZOLOMIDE
     Dosage: 200 MG, QD
     Route: 048
     Dates: start: 20150105, end: 20150109
  13. BEVACIZUMAB [Suspect]
     Active Substance: BEVACIZUMAB
     Dosage: 10 MG/KG, UNK
     Route: 041
     Dates: start: 20140915, end: 20140915
  14. BEVACIZUMAB [Suspect]
     Active Substance: BEVACIZUMAB
     Dosage: 10 MG/KG, UNK
     Route: 041
     Dates: start: 20141027, end: 20141027
  15. BEVACIZUMAB [Suspect]
     Active Substance: BEVACIZUMAB
     Dosage: 10 MG/KG, UNK
     Route: 041
     Dates: start: 20141110, end: 20141110
  16. BEVACIZUMAB [Suspect]
     Active Substance: BEVACIZUMAB
     Dosage: 10 MG/KG, UNK
     Route: 041
     Dates: start: 20150119, end: 20150119

REACTIONS (2)
  - Platelet count decreased [Recovered/Resolved]
  - Death [Fatal]

NARRATIVE: CASE EVENT DATE: 20141215
